FAERS Safety Report 16341341 (Version 1)
Quarter: 2019Q2

REPORT INFORMATION
  Report Type: Spontaneous
  Country: US (occurrence: US)
  Receive Date: 20190416
  Receipt Date: 20190416
  Transmission Date: 20190711
  Serious: Yes (Hospitalization)
  Sender: FDA-Public Use
  Company Number: None

PATIENT
  Age: 23 Month
  Sex: Female

DRUGS (1)
  1. NEULASTA [Suspect]
     Active Substance: PEGFILGRASTIM
     Indication: LANGERHANS^ CELL HISTIOCYTOSIS
     Route: 058
     Dates: start: 20190227

REACTIONS (1)
  - Platelet count increased [None]

NARRATIVE: CASE EVENT DATE: 201904
